FAERS Safety Report 10633788 (Version 3)
Quarter: 2015Q2

REPORT INFORMATION
  Report Type: Spontaneous
  Country: FR (occurrence: FR)
  Receive Date: 20141205
  Receipt Date: 20150625
  Transmission Date: 20150821
  Serious: Yes (Death)
  Sender: FDA-Public Use
  Company Number: FR-JNJFOC-20141201266

PATIENT
  Age: 58 Year
  Sex: Male

DRUGS (6)
  1. IMOVANE [Suspect]
     Active Substance: ZOPICLONE
     Indication: PRODUCT USED FOR UNKNOWN INDICATION
     Route: 048
     Dates: end: 20141021
  2. NALMEFENE HYDROCHLORIDE [Suspect]
     Active Substance: NALMEFENE HYDROCHLORIDE
     Indication: ALCOHOLISM
     Route: 048
     Dates: start: 201410, end: 201410
  3. ROVAMYCINE [Suspect]
     Active Substance: SPIRAMYCIN
     Indication: UPPER RESPIRATORY TRACT INFECTION
     Route: 048
     Dates: start: 20141021, end: 20141021
  4. IXPRIM [Suspect]
     Active Substance: ACETAMINOPHEN\TRAMADOL HYDROCHLORIDE
     Indication: PRODUCT USED FOR UNKNOWN INDICATION
     Route: 048
     Dates: end: 20141021
  5. SERESTA [Suspect]
     Active Substance: OXAZEPAM
     Indication: PRODUCT USED FOR UNKNOWN INDICATION
     Route: 048
     Dates: end: 20141021
  6. BIOCALYPTOL [Suspect]
     Active Substance: PHOLCODINE
     Indication: UPPER RESPIRATORY TRACT INFECTION
     Route: 048
     Dates: start: 20141021, end: 20141021

REACTIONS (1)
  - Cardio-respiratory arrest [Fatal]

NARRATIVE: CASE EVENT DATE: 20141021
